FAERS Safety Report 11607482 (Version 1)
Quarter: 2015Q4

REPORT INFORMATION
  Report Type: Spontaneous
  Country: US (occurrence: US)
  Receive Date: 20151007
  Receipt Date: 20151007
  Transmission Date: 20160304
  Serious: Yes (Other)
  Sender: FDA-Public Use
  Company Number: US-AMGEN-USASP2015102459

PATIENT
  Age: 61 Year
  Sex: Male

DRUGS (1)
  1. REPATHA [Suspect]
     Active Substance: EVOLOCUMAB
     Indication: PRODUCT USED FOR UNKNOWN INDICATION
     Dosage: UNK
     Route: 065

REACTIONS (10)
  - Eye pain [Unknown]
  - Weight increased [Unknown]
  - Rectal discharge [Unknown]
  - Cyst [Unknown]
  - Abdominal distension [Unknown]
  - Photosensitivity reaction [Unknown]
  - Flatulence [Unknown]
  - Dizziness [Unknown]
  - Pulmonary congestion [Unknown]
  - Disturbance in attention [Unknown]
